FAERS Safety Report 25983099 (Version 1)
Quarter: 2025Q4

REPORT INFORMATION
  Report Type: Spontaneous
  Country: EU (occurrence: EU)
  Receive Date: 20251031
  Receipt Date: 20251031
  Transmission Date: 20260117
  Serious: Yes (Other)
  Sender: BAUSCH AND LOMB
  Company Number: None

PATIENT
  Age: 81 Year
  Sex: Female
  Weight: 40 kg

DRUGS (4)
  1. DICLOFENAC [Suspect]
     Active Substance: DICLOFENAC
     Indication: Pain
     Dosage: 150 MG TOTAL, IN THREE ADMINISTRATIONS (ONE OF 100, TWO OF 25), IN SOME PERIODS FOR SOME DAYS EVEN 3
     Route: 048
     Dates: start: 20250601, end: 20250917
  2. DICLOFENAC [Suspect]
     Active Substance: DICLOFENAC
     Dosage: DOSE RE-INTRODUCED
     Route: 048
  3. DICLOFENAC [Suspect]
     Active Substance: DICLOFENAC
     Indication: Pain
     Dosage: 150 MG TOTAL, IN THREE ADMINISTRATIONS (ONE OF 100, TWO OF 25), IN SOME PERIODS FOR SOME DAYS EVEN 3
     Route: 048
     Dates: start: 20250601, end: 20250917
  4. DICLOFENAC [Suspect]
     Active Substance: DICLOFENAC
     Dosage: DOSE RE-INTRODUCED
     Route: 048

REACTIONS (2)
  - Duodenal ulcer [Recovering/Resolving]
  - Drug abuse [Recovered/Resolved]

NARRATIVE: CASE EVENT DATE: 20250601
